FAERS Safety Report 21455312 (Version 5)
Quarter: 2022Q4

REPORT INFORMATION
  Report Type: Spontaneous
  Country: US (occurrence: US)
  Receive Date: 20221014
  Receipt Date: 20221221
  Transmission Date: 20230113
  Serious: No
  Sender: FDA-Public Use
  Company Number: US-BRISTOL-MYERS SQUIBB COMPANY-2022-120222

PATIENT
  Age: 66 Year
  Sex: Female

DRUGS (3)
  1. ORENCIA [Suspect]
     Active Substance: ABATACEPT
     Indication: Rheumatoid arthritis
     Dosage: LOT-ACE2488?EXP- 31-MAY-2024
     Route: 058
     Dates: start: 202209
  2. ORENCIA [Suspect]
     Active Substance: ABATACEPT
     Route: 058
     Dates: start: 20220924
  3. ORENCIA [Suspect]
     Active Substance: ABATACEPT
     Dosage: LOT-ACE2488?EXP- 31-MAY-2024
     Route: 058
     Dates: start: 20220924

REACTIONS (11)
  - Feeling abnormal [Unknown]
  - Asthenia [Unknown]
  - Dizziness [Unknown]
  - Neurological symptom [Unknown]
  - Hypertension [Unknown]
  - Pain [Unknown]
  - Lethargy [Unknown]
  - Chills [Unknown]
  - Cough [Unknown]
  - Pain [Unknown]
  - Cluster headache [Unknown]
